FAERS Safety Report 8683150 (Version 3)
Quarter: 2012Q4

REPORT INFORMATION
  Report Type: 
  Country: US (occurrence: US)
  Receive Date: 20120726
  Receipt Date: 20120927
  Transmission Date: 20130627
  Serious: No
  Sender: FDA-Public Use
  Company Number: US-009507513-1207USA005385

PATIENT
  Sex: Male
  Weight: 98.41 kg

DRUGS (6)
  1. JANUMET [Suspect]
     Indication: DIABETES MELLITUS
     Dosage: 50mg /1000 mg twice daily
     Route: 048
     Dates: start: 20110810, end: 20120713
  2. COUMADIN [Concomitant]
  3. FOSINOPRIL SODIUM [Concomitant]
  4. METOPROLOL [Concomitant]
  5. LIPIRA [Concomitant]
  6. GLIPIZIDE [Concomitant]

REACTIONS (1)
  - Lipase increased [Recovered/Resolved]
